FAERS Safety Report 6330023-7 (Version None)
Quarter: 2009Q3

REPORT INFORMATION
  Report Type: 
  Country: None (occurrence: None)
  Receive Date: 20090825
  Receipt Date: 20090619
  Transmission Date: 20100115
  Serious: Yes (Other)
  Sender: FDA-Public Use
  Company Number: DSA_33896_2009

PATIENT
  Sex: Female

DRUGS (1)
  1. APLENZIN [Suspect]
     Indication: DRUG USE FOR UNKNOWN INDICATION
     Dosage: DF

REACTIONS (2)
  - MOVEMENT DISORDER [None]
  - NONSPECIFIC REACTION [None]
